FAERS Safety Report 18558855 (Version 1)
Quarter: 2020Q4

REPORT INFORMATION
  Report Type: Spontaneous
  Country: US (occurrence: US)
  Receive Date: 20201125
  Receipt Date: 20201125
  Transmission Date: 20210114
  Serious: Yes (Disabling)
  Sender: FDA-Public Use
  Company Number: None

PATIENT
  Age: 47 Year
  Sex: Female
  Weight: 97.65 kg

DRUGS (6)
  1. LEVOFLOXACIN, LEVOFLOXACIN-ORAL [Suspect]
     Active Substance: LEVOFLOXACIN
     Indication: SKIN INFECTION
     Dosage: ?          QUANTITY:14 TABLET(S);?
     Route: 048
     Dates: start: 20201023, end: 20201029
  2. MULTIVITAMIN [Concomitant]
     Active Substance: VITAMINS
  3. PROBIOTIC [Concomitant]
     Active Substance: PROBIOTICS NOS
  4. CLARITIN [Concomitant]
     Active Substance: LORATADINE
  5. PRILOSEC [Concomitant]
     Active Substance: OMEPRAZOLE MAGNESIUM
  6. TYLENOL [Concomitant]
     Active Substance: ACETAMINOPHEN

REACTIONS (10)
  - Fear [None]
  - Pain [None]
  - Tendon disorder [None]
  - Tendon rupture [None]
  - Pain in extremity [None]
  - Gait disturbance [None]
  - Tendonitis [None]
  - Weight bearing difficulty [None]
  - Pelvic floor repair [None]
  - Arthralgia [None]

NARRATIVE: CASE EVENT DATE: 20201030
